FAERS Safety Report 22651485 (Version 1)
Quarter: 2023Q2

REPORT INFORMATION
  Report Type: Spontaneous
  Country: US (occurrence: None)
  Receive Date: 20230627
  Receipt Date: 20230627
  Transmission Date: 20230722
  Serious: Yes (unspecified)
  Sender: FDA-Public Use
  Company Number: None

PATIENT
  Age: 65 Year
  Sex: Female
  Weight: 66.6 kg

DRUGS (10)
  1. ESZOPICLONE [Suspect]
     Active Substance: ESZOPICLONE
     Dosage: OTHER QUANTITY : 1 TABLET(S);?FREQUENCY : AT BEDTIME;?
     Route: 048
     Dates: start: 20201001, end: 20230101
  2. LEXAPRO [Suspect]
     Active Substance: ESCITALOPRAM OXALATE
  3. ARMOUR THYROID [Concomitant]
  4. FEMALE HORMONE REPLACEMENT THERAPY [Concomitant]
  5. CLONAZEPAM [Concomitant]
     Active Substance: CLONAZEPAM
  6. VIT C [Concomitant]
  7. VITAMIN D NOS [Concomitant]
     Active Substance: VITAMIN D NOS
  8. VIT K [Concomitant]
  9. MAGNESIUM/CALCIUM [Concomitant]
  10. MULTI-VITAMIN [Concomitant]

REACTIONS (2)
  - Immune thrombocytopenia [None]
  - Myelodysplastic syndrome [None]

NARRATIVE: CASE EVENT DATE: 20210101
